FAERS Safety Report 6522052-5 (Version None)
Quarter: 2009Q4

REPORT INFORMATION
  Report Type: 
  Country: None (occurrence: None)
  Receive Date: 20091230
  Receipt Date: 20091228
  Transmission Date: 20100525
  Serious: Yes (Death)
  Sender: FDA-Public Use
  Company Number: US-KINGPHARMUSA00001-K200901604

PATIENT
  Age: 59 Year
  Sex: Male

DRUGS (4)
  1. LEVOXYL [Suspect]
     Dosage: UNK
     Route: 048
  2. TRAMADOL [Suspect]
     Dosage: UNK
     Route: 048
  3. OLMESARTAN [Suspect]
     Dosage: UNK
     Route: 048
  4. MIRTAZAPINE [Suspect]
     Dosage: UNK
     Route: 048

REACTIONS (1)
  - DEATH [None]
